FAERS Safety Report 9451568 (Version 5)
Quarter: 2014Q2

REPORT INFORMATION
  Report Type: Spontaneous
  Country: GB (occurrence: GB)
  Receive Date: 20130811
  Receipt Date: 20140623
  Transmission Date: 20141212
  Serious: Yes (Hospitalization)
  Sender: FDA-Public Use
  Company Number: GB-UCBSA-094100

PATIENT
  Age: 64 Year
  Sex: Female

DRUGS (27)
  1. CIMZIA [Suspect]
     Indication: RHEUMATOID ARTHRITIS
     Dosage: 200 MG, EV 2 WEEKS(QOW)
     Route: 058
     Dates: start: 20130110, end: 20130418
  2. TOCILIZUMAB [Suspect]
     Indication: RHEUMATOID ARTHRITIS
  3. AMLODIPINE [Concomitant]
     Indication: HYPERTENSION
     Dosage: 10 MG, ONCE DAILY (QD)
     Route: 048
     Dates: start: 20130418, end: 20130502
  4. AMLODIPINE [Concomitant]
     Dosage: UNK
     Route: 048
     Dates: start: 20110620
  5. PRAVASTATIN [Concomitant]
     Indication: BLOOD CHOLESTEROL INCREASED
     Dosage: 40 MG, ONCE DAILY (QD)
     Route: 048
     Dates: start: 20130418, end: 20130501
  6. PRAVASTATIN [Concomitant]
     Indication: HYPERCHOLESTEROLAEMIA
     Dosage: UNK
     Route: 048
     Dates: start: 20100710
  7. PRAVASTATIN [Concomitant]
     Dosage: 40 UNK, UNK
     Route: 048
     Dates: start: 20090709
  8. RAMIPRIL [Concomitant]
     Indication: HYPERTENSION
     Dosage: 10 MG, ONCE DAILY (QD)
     Route: 048
     Dates: start: 20130418, end: 20130502
  9. RAMIPRIL [Concomitant]
     Dosage: UNK
     Route: 048
     Dates: start: 20110620
  10. HYPROMELLOSE [Concomitant]
     Indication: DRY EYE
     Dosage: UNK
     Dates: start: 20121115
  11. METHOTREXATE [Concomitant]
     Indication: RHEUMATOID ARTHRITIS
     Dosage: 20 MG, WEEKLY (QW)
     Route: 058
     Dates: start: 20121009, end: 20130418
  12. METHOTREXATE [Concomitant]
     Dosage: 25 MG, WEEKLY (QW)
     Route: 058
     Dates: start: 20020628, end: 20130111
  13. METHOTREXATE [Concomitant]
     Dosage: 25 MG, WEEKLY (QW)
     Route: 058
     Dates: start: 20121017, end: 20130415
  14. METHOTREXATE [Concomitant]
     Dosage: 20 MG, WEEKLY (QW)
     Route: 058
     Dates: start: 20130415, end: 20130418
  15. METHOTREXATE [Concomitant]
     Dosage: 15MG WEEKLY
     Route: 058
     Dates: start: 20131223
  16. ZAPAIN [Concomitant]
     Dosage: UNK
     Route: 048
     Dates: start: 20131223
  17. AMOXICILLIN [Concomitant]
     Indication: ANTIBIOTIC THERAPY
     Dosage: 1500 MG, 3X/DAY (TID)
     Route: 048
     Dates: start: 20130418, end: 20130425
  18. CLARITHROMYCIN [Concomitant]
     Indication: PNEUMOCYSTIS JIROVECII PNEUMONIA
     Dosage: 500 MG, EV 2 DAYS (QOD)
     Route: 048
     Dates: start: 20130418, end: 20130424
  19. ENOXAPARIN [Concomitant]
     Indication: THROMBOSIS
     Dosage: 40 MG, ONCE DAILY (QD)
     Route: 058
     Dates: start: 20130418, end: 20130501
  20. DOSULEPIN [Concomitant]
     Indication: PAIN
     Dosage: 150 MG, ONCE DAILY , ONCE NIGHT
     Route: 048
     Dates: start: 20130418, end: 20130501
  21. OMEPRAZOLE [Concomitant]
     Indication: HYPERCHLORHYDRIA
     Dosage: UNK
     Route: 048
     Dates: start: 20130418, end: 20130501
  22. PARACETAMOL [Concomitant]
     Indication: PAIN
     Dosage: 1000MG ONCE IN 6 HOURS.
     Route: 042
     Dates: start: 20130418, end: 20130430
  23. PARACETAMOL [Concomitant]
     Dosage: 1000MG IN 6 HOURS.
     Route: 042
     Dates: start: 20130430, end: 20131223
  24. PARACETAMOL [Concomitant]
     Dosage: UNK
     Route: 042
     Dates: start: 1982, end: 20130418
  25. FOLIC ACID [Concomitant]
     Dosage: UNK
     Dates: start: 20130121, end: 20130425
  26. FOLIC ACID [Concomitant]
     Dosage: UNK
     Dates: start: 20131223
  27. MELOXICAM [Concomitant]
     Dosage: UNKNOWN

REACTIONS (1)
  - Pneumocystis jirovecii pneumonia [Recovered/Resolved]
